FAERS Safety Report 22352677 (Version 1)
Quarter: 2023Q2

REPORT INFORMATION
  Report Type: Spontaneous
  Country: DE (occurrence: DE)
  Receive Date: 20230523
  Receipt Date: 20230523
  Transmission Date: 20230721
  Serious: Yes (Other)
  Sender: FDA-Public Use
  Company Number: DE-CELLTRION INC.-2023DE010356

PATIENT

DRUGS (6)
  1. RITUXIMAB [Suspect]
     Active Substance: RITUXIMAB
     Indication: PSTPIP1-associated myeloid-related proteinaemia inflammatory syndrome
  2. TOCILIZUMAB [Suspect]
     Active Substance: TOCILIZUMAB
     Indication: PSTPIP1-associated myeloid-related proteinaemia inflammatory syndrome
     Dosage: UNK
     Dates: start: 201307
  3. PREDNISONE [Concomitant]
     Active Substance: PREDNISONE
     Dosage: LOW DOSE
  4. ASPIRIN [Concomitant]
     Active Substance: ASPIRIN
  5. MYCOPHENOLATE MOFETIL [Concomitant]
     Active Substance: MYCOPHENOLATE MOFETIL
     Indication: PSTPIP1-associated myeloid-related proteinaemia inflammatory syndrome
  6. CYCLOSPORINE [Concomitant]
     Active Substance: CYCLOSPORINE
     Indication: Pyoderma gangrenosum

REACTIONS (3)
  - Anaphylactoid reaction [Unknown]
  - Therapeutic product effect decreased [Unknown]
  - Intentional product use issue [Unknown]
